FAERS Safety Report 9922158 (Version 3)
Quarter: 2014Q2

REPORT INFORMATION
  Report Type: Spontaneous
  Country: US (occurrence: US)
  Receive Date: 20140225
  Receipt Date: 20140516
  Transmission Date: 20141212
  Serious: Yes (Hospitalization)
  Sender: FDA-Public Use
  Company Number: US-INCYTE CORPORATION-2014IN000397

PATIENT
  Age: 65 Year
  Sex: Female
  Weight: 39.6 kg

DRUGS (16)
  1. JAKAFI [Suspect]
     Indication: MYELOFIBROSIS
     Dosage: 20 MG, BID
     Route: 048
     Dates: start: 20131227, end: 20131230
  2. JAKAFI [Suspect]
     Dosage: 20 MG, BID
     Route: 048
     Dates: start: 20130109, end: 20140110
  3. JAKAFI [Suspect]
     Dosage: 10 MG, BID
     Dates: start: 20140110, end: 20140127
  4. ACETAMINOPHEN [Concomitant]
     Indication: PAIN
     Dosage: 325-650 MG, EVERY 4 HOURS PRN
     Route: 048
  5. ASPIRIN [Concomitant]
     Dosage: 81 MG, EVERY MORNING
     Route: 048
  6. CLARITHROMYCIN [Concomitant]
     Dosage: 500 MG, EVERY 12 HOURS
     Route: 048
  7. ETHAMBUTOL HYDROCHLORIDE [Concomitant]
     Dosage: 400 MG, EVERY MORNING
     Route: 048
  8. IMODIUM A-D [Concomitant]
     Dosage: 1 CAPSULE, PRN
     Route: 048
  9. INDOMETHACIN                       /00003801/ [Concomitant]
     Dosage: 25 MG, TID
     Route: 048
  10. CULTURELLE [Concomitant]
     Dosage: 1, EVERY MORNING
     Route: 048
  11. MS CONTIN [Concomitant]
     Dosage: 15 MG, EVERY 12 HOURS
     Route: 048
  12. OXYCODONE HYDROCHLORIDE [Concomitant]
     Indication: PAIN
     Dosage: 5-10 MG, EVERY 4 HOURS PRN
     Route: 048
  13. POTASSIUM CHLORIDE [Concomitant]
     Dosage: 20 MEQ, EVERY MORNING
     Route: 048
  14. PROCHLORPERAZINE MALEATE [Concomitant]
     Indication: NAUSEA
     Dosage: 5-10 MG, EVERY 4 HOURS PRN
     Route: 048
  15. RIFAMPIN [Concomitant]
     Dosage: 600 MG, EVERY MORNING
     Route: 048
  16. SCOPOLAMINE HYDROBROMIDE [Concomitant]
     Dosage: 1.5 MG, EVERY 72 HOURS
     Route: 062

REACTIONS (19)
  - Acute respiratory failure [Recovered/Resolved]
  - Systemic inflammatory response syndrome [Recovered/Resolved]
  - Cardiac failure congestive [Recovered/Resolved]
  - Acute myocardial infarction [Unknown]
  - Sepsis [Recovered/Resolved]
  - Pneumonia [Recovered/Resolved]
  - Dehydration [Unknown]
  - Mycobacterium avium complex infection [Unknown]
  - Fall [Unknown]
  - Sternal fracture [Unknown]
  - Urinary tract infection [Unknown]
  - Nausea [Unknown]
  - Hypokalaemia [Unknown]
  - Anaemia [Unknown]
  - Fatigue [Unknown]
  - Asthenia [Unknown]
  - Vomiting [Unknown]
  - Hypotension [Unknown]
  - Hyponatraemia [Unknown]
